FAERS Safety Report 4729033-2 (Version None)
Quarter: 2005Q3

REPORT INFORMATION
  Report Type: 
  Country: None (occurrence: None)
  Receive Date: 20050729
  Receipt Date: 20050204
  Transmission Date: 20060218
  Serious: No
  Sender: FDA-Public Use
  Company Number: US-GLAXOSMITHKLINE-A0543999A

PATIENT
  Age: 52 Year
  Sex: Male

DRUGS (4)
  1. IMITREX [Suspect]
     Indication: MIGRAINE
     Dosage: 100MG VARIABLE DOSE
     Route: 048
     Dates: start: 20041223
  2. MOEXIPRIL HCL [Concomitant]
  3. PROTONIX [Concomitant]
  4. COLD MEDICINE [Concomitant]

REACTIONS (2)
  - BALANCE DISORDER [None]
  - TINNITUS [None]
